FAERS Safety Report 15350366 (Version 1)
Quarter: 2018Q3

REPORT INFORMATION
  Report Type: Spontaneous
  Country: US (occurrence: US)
  Receive Date: 20180905
  Receipt Date: 20180905
  Transmission Date: 20181010
  Serious: No
  Sender: FDA-Public Use
  Company Number: US-AMGEN-USASP2018121717

PATIENT
  Age: 18 Year
  Sex: Female

DRUGS (1)
  1. ENBREL [Suspect]
     Active Substance: ETANERCEPT
     Indication: JUVENILE IDIOPATHIC ARTHRITIS
     Dosage: 50 MG, ONCE EVERY 10 DAYS
     Route: 065
     Dates: start: 2014

REACTIONS (3)
  - Product storage error [Unknown]
  - Off label use [Unknown]
  - Drug dose omission [Unknown]

NARRATIVE: CASE EVENT DATE: 2014
